FAERS Safety Report 9778442 (Version 1)
Quarter: 2013Q4

REPORT INFORMATION
  Report Type: Spontaneous
  Country: US (occurrence: None)
  Receive Date: 20131220
  Receipt Date: 20131220
  Transmission Date: 20140711
  Serious: No
  Sender: FDA-Public Use
  Company Number: None

PATIENT
  Age: 81 Year
  Sex: Female
  Weight: 83.46 kg

DRUGS (1)
  1. SAVELLA [Suspect]
     Indication: NEUROPATHY PERIPHERAL
     Route: 048

REACTIONS (1)
  - Erythema [None]
